FAERS Safety Report 16541315 (Version 1)
Quarter: 2019Q3

REPORT INFORMATION
  Report Type: Spontaneous
  Country: GB (occurrence: GB)
  Receive Date: 20190708
  Receipt Date: 20190708
  Transmission Date: 20191004
  Serious: Yes (Other)
  Sender: FDA-Public Use
  Company Number: GB-BAYER-2019-127300

PATIENT
  Age: 44 Year
  Sex: Male
  Weight: 80 kg

DRUGS (1)
  1. CIPROFLOXACIN MONOHYDROCHLORIDE [Suspect]
     Active Substance: CIPROFLOXACIN
     Indication: EPIDIDYMITIS
     Dosage: 1000 MG, QD
     Route: 048
     Dates: start: 20190531, end: 20190606

REACTIONS (5)
  - Urinary tract disorder [Unknown]
  - Malaise [Unknown]
  - Tendonitis [Unknown]
  - Anxiety [Unknown]
  - Myalgia [Unknown]

NARRATIVE: CASE EVENT DATE: 20190605
